FAERS Safety Report 12446286 (Version 1)
Quarter: 2016Q2

REPORT INFORMATION
  Report Type: Spontaneous
  Country: US (occurrence: None)
  Receive Date: 20160607
  Receipt Date: 20160607
  Transmission Date: 20160815
  Serious: Yes (Other)
  Sender: FDA-Public Use
  Company Number: None

PATIENT
  Age: 72 Year
  Sex: Male
  Weight: 81.65 kg

DRUGS (2)
  1. METOPROLOL TARTRATE 25MG, 25 MG AUROLIFE PHARMA, DAYTON NJ . [Suspect]
     Active Substance: METOPROLOL TARTRATE
     Indication: HYPERTENSION
     Dosage: 90 TABLET(S) TWICE A DAY TAKEN BY MOUTH
     Route: 048
  2. METOPROLOL TARTRATE 25MG, 25 MG AUROLIFE PHARMA, DAYTON NJ . [Suspect]
     Active Substance: METOPROLOL TARTRATE
     Indication: CARDIAC DISORDER
     Dosage: 90 TABLET(S) TWICE A DAY TAKEN BY MOUTH
     Route: 048

REACTIONS (4)
  - Somnolence [None]
  - Pruritus [None]
  - Product quality issue [None]
  - Fatigue [None]

NARRATIVE: CASE EVENT DATE: 20160101
